FAERS Safety Report 8805717 (Version 1)
Quarter: 2012Q4

REPORT INFORMATION
  Report Type: 
  Country: JP (occurrence: JP)
  Receive Date: 20120924
  Receipt Date: 20120924
  Transmission Date: 20130627
  Serious: Yes (Hospitalization)
  Sender: FDA-Public Use
  Company Number: JP-MYLANLABS-2012S1019298

PATIENT
  Age: 69 Year
  Sex: Male

DRUGS (4)
  1. CARBIDOPA LEVODOPA [Suspect]
     Indication: PARKINSON^S DISEASE
     Dosage: 300/30 mg/day
     Route: 048
  2. PRAMIPEXOLE [Suspect]
     Indication: PARKINSON^S DISEASE
     Dosage: 1.5 mg/day
     Route: 065
  3. DOMPERIDONE [Concomitant]
     Indication: CONSTIPATION
     Dosage: 15 mg/day
     Route: 065
  4. MOSAPRIDE [Concomitant]
     Indication: CONSTIPATION
     Dosage: 15 mg/day
     Route: 065

REACTIONS (6)
  - Faecaloma [Recovered/Resolved]
  - Diarrhoea [Recovered/Resolved]
  - Parkinsonism hyperpyrexia syndrome [Recovered/Resolved]
  - Hypernatraemia [None]
  - Blood creatine phosphokinase increased [None]
  - Drug ineffective [None]
